FAERS Safety Report 11786131 (Version 1)
Quarter: 2015Q4

REPORT INFORMATION
  Report Type: Spontaneous
  Country: CH (occurrence: CH)
  Receive Date: 20151130
  Receipt Date: 20151130
  Transmission Date: 20160305
  Serious: Yes (Hospitalization, Other)
  Sender: FDA-Public Use
  Company Number: CH-PFIZER INC-2015397902

PATIENT
  Age: 74 Year
  Sex: Female

DRUGS (22)
  1. METOJECT [Suspect]
     Active Substance: METHOTREXATE SODIUM
     Indication: PSORIASIS
     Dosage: 15 MG, WEEKLY
     Route: 058
  2. ATEDUREX [Concomitant]
  3. SOLU-CORTEF [Concomitant]
     Active Substance: HYDROCORTISONE SODIUM SUCCINATE
     Dosage: 50 MG
     Route: 037
     Dates: start: 20150903, end: 20150903
  4. SOLU-CORTEF [Concomitant]
     Active Substance: HYDROCORTISONE SODIUM SUCCINATE
     Dosage: 50 MG
     Route: 037
     Dates: start: 20150908, end: 20150908
  5. CYTOSAR [Suspect]
     Active Substance: CYTARABINE
     Dosage: 3110 MG
     Route: 042
     Dates: start: 20150918, end: 20150918
  6. METHOTREXATE SODIUM. [Suspect]
     Active Substance: METHOTREXATE SODIUM
     Indication: T-CELL LYMPHOMA
     Dosage: 15 MG
     Route: 037
     Dates: start: 20150903, end: 20150903
  7. METHOTREXATE SODIUM. [Suspect]
     Active Substance: METHOTREXATE SODIUM
     Dosage: 15 MG
     Route: 037
     Dates: start: 20150908, end: 20150908
  8. METHOTREXATE SODIUM. [Suspect]
     Active Substance: METHOTREXATE SODIUM
     Dosage: 4666 MG+778 MG
     Route: 042
     Dates: start: 20150915, end: 20150915
  9. METHOTREXATE SODIUM. [Suspect]
     Active Substance: METHOTREXATE SODIUM
     Indication: MENINGEAL DISORDER
     Dosage: 15 MG
     Route: 037
     Dates: start: 20150904, end: 20150904
  10. EPRIL [Concomitant]
     Active Substance: ENALAPRIL MALEATE
  11. CYTOSAR [Suspect]
     Active Substance: CYTARABINE
     Dosage: 40 MG
     Route: 037
     Dates: start: 20150908, end: 20150908
  12. ACIDUM FOLICUM [Concomitant]
     Active Substance: FOLIC ACID
  13. CYTOSAR [Suspect]
     Active Substance: CYTARABINE
     Indication: T-CELL LYMPHOMA
     Dosage: 40 MG
     Route: 037
     Dates: start: 20150903, end: 20150903
  14. ASPIRIN. [Concomitant]
     Active Substance: ASPIRIN
  15. CYTOSAR [Suspect]
     Active Substance: CYTARABINE
     Dosage: 3110 MG, 2X/DAY
     Route: 042
     Dates: start: 20150917, end: 20150917
  16. SOLU-CORTEF [Concomitant]
     Active Substance: HYDROCORTISONE SODIUM SUCCINATE
     Dosage: 50 MG
     Route: 037
     Dates: start: 20150904, end: 20150904
  17. SOLU-CORTEF [Concomitant]
     Active Substance: HYDROCORTISONE SODIUM SUCCINATE
     Dosage: 50 MG
     Route: 037
     Dates: start: 20150912, end: 20150912
  18. CYTOSAR [Suspect]
     Active Substance: CYTARABINE
     Dosage: 40 MG
     Route: 037
     Dates: start: 20150912, end: 20150912
  19. METHOTREXATE SODIUM. [Suspect]
     Active Substance: METHOTREXATE SODIUM
     Dosage: 15 MG
     Route: 037
     Dates: start: 20150912, end: 20150912
  20. LANSOPRAZOL [Concomitant]
     Active Substance: LANSOPRAZOLE
  21. CYTOSAR [Suspect]
     Active Substance: CYTARABINE
     Indication: MENINGEAL DISORDER
     Dosage: 40 MG
     Route: 037
     Dates: start: 20150904, end: 20150904
  22. CYTOSAR [Suspect]
     Active Substance: CYTARABINE
     Dosage: 3110 MG
     Route: 042
     Dates: start: 20150916, end: 20150916

REACTIONS (3)
  - Meningeal disorder [Recovering/Resolving]
  - T-cell lymphoma [Recovering/Resolving]
  - Encephalitis [Recovering/Resolving]

NARRATIVE: CASE EVENT DATE: 20150815
